FAERS Safety Report 12984580 (Version 2)
Quarter: 2016Q4

REPORT INFORMATION
  Report Type: Spontaneous
  Country: US (occurrence: US)
  Receive Date: 20161129
  Receipt Date: 20161228
  Transmission Date: 20170207
  Serious: No
  Sender: FDA-Public Use
  Company Number: US-GLAXOSMITHKLINE-US2016176410

PATIENT
  Sex: Female

DRUGS (7)
  1. VENTOLIN HFA [Suspect]
     Active Substance: ALBUTEROL SULFATE
     Indication: PULMONARY FIBROSIS
  2. VENTOLIN HFA [Suspect]
     Active Substance: ALBUTEROL SULFATE
     Indication: EMPHYSEMA
  3. VENTOLIN HFA [Suspect]
     Active Substance: ALBUTEROL SULFATE
     Indication: CHRONIC OBSTRUCTIVE PULMONARY DISEASE
     Dosage: UNK
     Route: 055
  4. LASIX [Concomitant]
     Active Substance: FUROSEMIDE
  5. PREVACID [Concomitant]
     Active Substance: LANSOPRAZOLE
  6. WARFARIN [Concomitant]
     Active Substance: WARFARIN
  7. VENTOLIN HFA [Suspect]
     Active Substance: ALBUTEROL SULFATE
     Indication: BRONCHITIS

REACTIONS (4)
  - Incorrect product storage [Unknown]
  - Drug dose omission [Unknown]
  - Product quality issue [Unknown]
  - Wrong technique in product usage process [Unknown]
